FAERS Safety Report 26083531 (Version 1)
Quarter: 2025Q4

REPORT INFORMATION
  Report Type: Report from Study
  Country: None (occurrence: EU)
  Receive Date: 20251124
  Receipt Date: 20251124
  Transmission Date: 20260118
  Serious: Yes (Other)
  Sender: ALNYLAM PHARMACEUTICALS
  Company Number: EU-ALNYLAM PHARMACEUTICALS, INC.-ALN-2025-007388

PATIENT
  Age: 38 Year

DRUGS (1)
  1. OXLUMO [Suspect]
     Active Substance: LUMASIRAN
     Indication: Product used for unknown indication
     Dosage: 189 MILLIGRAM (94.5 MG/0.5 ML), Q3M
     Route: 065

REACTIONS (9)
  - Abdominal pain upper [Unknown]
  - Urinary tract infection [Recovered/Resolved]
  - Multiple sclerosis [Unknown]
  - Fall [Unknown]
  - Contusion [Unknown]
  - Impaired driving ability [Unknown]
  - Fatigue [Unknown]
  - Back pain [Unknown]
  - Psychotherapy [Unknown]
